FAERS Safety Report 4352563-2 (Version None)
Quarter: 2004Q2

REPORT INFORMATION
  Report Type: 
  Country: None (occurrence: None)
  Receive Date: 20040427
  Receipt Date: 20040129
  Transmission Date: 20050107
  Serious: No
  Sender: FDA-Public Use
  Company Number: WAES 0401USA02207

PATIENT

DRUGS (2)
  1. EMEND [Suspect]
     Indication: NAUSEA
     Dosage: PO
     Route: 048
  2. EMEND [Suspect]
     Indication: VOMITING
     Dosage: PO
     Route: 048

REACTIONS (2)
  - HICCUPS [None]
  - OESOPHAGITIS [None]
